FAERS Safety Report 7360899-6 (Version None)
Quarter: 2011Q1

REPORT INFORMATION
  Report Type: 
  Country: None (occurrence: None)
  Receive Date: 20110318
  Receipt Date: 20110309
  Transmission Date: 20110831
  Serious: Yes (Other)
  Sender: FDA-Public Use
  Company Number: US-AMGEN-USASP2011013335

PATIENT
  Age: 60 Year
  Sex: Female

DRUGS (2)
  1. ENBREL [Suspect]
     Indication: ANKYLOSING SPONDYLITIS
     Dosage: 50 MG, QWK
     Dates: start: 20070511, end: 20101101
  2. HUMIRA [Concomitant]

REACTIONS (9)
  - IRITIS [None]
  - THERAPEUTIC RESPONSE DECREASED [None]
  - DEPRESSION [None]
  - ANKYLOSING SPONDYLITIS [None]
  - WHITE BLOOD CELL COUNT DECREASED [None]
  - NAUSEA [None]
  - HYPERHIDROSIS [None]
  - CATARACT [None]
  - ASTHENIA [None]
